FAERS Safety Report 9486192 (Version 3)
Quarter: 2014Q1

REPORT INFORMATION
  Report Type: Report from Study
  Country: BR (occurrence: BR)
  Receive Date: 20130829
  Receipt Date: 20140203
  Transmission Date: 20141002
  Serious: Yes (Death, Hospitalization, Disabling, Other)
  Sender: FDA-Public Use
  Company Number: BR-US-EMD SERONO, INC.-7229217

PATIENT
  Age: 48 Year
  Sex: Male

DRUGS (9)
  1. REBIF [Suspect]
     Indication: RELAPSING-REMITTING MULTIPLE SCLEROSIS
     Route: 058
     Dates: start: 20110414, end: 20140115
  2. AAS [Concomitant]
     Indication: THROMBOSIS
  3. AAS [Concomitant]
     Indication: CARDIOVASCULAR DISORDER
  4. SERTRALINE HYDROCHLORIDE [Concomitant]
     Indication: BLOOD CHOLESTEROL INCREASED
  5. SERTRALINE HYDROCHLORIDE [Concomitant]
     Indication: BLOOD TRIGLYCERIDES INCREASED
  6. SIMVASTATIN [Concomitant]
     Indication: PRODUCT USED FOR UNKNOWN INDICATION
  7. CARBAMAZEPINE [Concomitant]
     Indication: PRODUCT USED FOR UNKNOWN INDICATION
  8. OMEPRAZOLE [Concomitant]
     Indication: PROPHYLAXIS
  9. ALPRAZOLAM [Concomitant]
     Indication: PRODUCT USED FOR UNKNOWN INDICATION

REACTIONS (11)
  - Myocardial infarction [Fatal]
  - Sepsis [Not Recovered/Not Resolved]
  - Pelvic abscess [Not Recovered/Not Resolved]
  - Groin abscess [Not Recovered/Not Resolved]
  - Muscle abscess [Not Recovered/Not Resolved]
  - Urinary tract infection [Not Recovered/Not Resolved]
  - Local swelling [Unknown]
  - Choking [Not Recovered/Not Resolved]
  - Walking disability [Unknown]
  - Incontinence [Unknown]
  - Muscular weakness [Unknown]
